FAERS Safety Report 7943446-7 (Version None)
Quarter: 2011Q4

REPORT INFORMATION
  Report Type: 
  Country: None (occurrence: None)
  Receive Date: 20111128
  Receipt Date: 20111123
  Transmission Date: 20120403
  Serious: Yes (Other)
  Sender: FDA-Public Use
  Company Number: AT-BRISTOL-MYERS SQUIBB COMPANY-16245649

PATIENT
  Age: 25 Year
  Sex: Male

DRUGS (2)
  1. CLOZAPINE [Suspect]
  2. ABILIFY [Suspect]
     Indication: SCHIZOPHRENIA, PARANOID TYPE

REACTIONS (1)
  - EOSINOPENIA [None]
